FAERS Safety Report 7989125-1 (Version None)
Quarter: 2011Q4

REPORT INFORMATION
  Report Type: 
  Country: None (occurrence: None)
  Receive Date: 20111219
  Receipt Date: 20111209
  Transmission Date: 20120403
  Serious: No
  Sender: FDA-Public Use
  Company Number: US-JNJFOC-20111205372

PATIENT
  Sex: Female
  Weight: 53.98 kg

DRUGS (1)
  1. FENTANYL-100 [Suspect]
     Indication: BACK PAIN
     Route: 062
     Dates: start: 20110601

REACTIONS (2)
  - POOR QUALITY DRUG ADMINISTERED [None]
  - DRUG INEFFECTIVE [None]
